FAERS Safety Report 5245543-6 (Version None)
Quarter: 2007Q1

REPORT INFORMATION
  Report Type: 
  Country: None (occurrence: None)
  Receive Date: 20070223
  Receipt Date: 20070214
  Transmission Date: 20070707
  Serious: Yes (Other)
  Sender: FDA-Public Use
  Company Number: FR-PFIZER INC-2007007264

PATIENT
  Sex: Male
  Weight: 82 kg

DRUGS (1)
  1. XALATAN [Suspect]

REACTIONS (4)
  - BLOOD PRESSURE DECREASED [None]
  - DISCOMFORT [None]
  - FATIGUE [None]
  - MALAISE [None]
